FAERS Safety Report 5730710-5 (Version None)
Quarter: 2008Q2

REPORT INFORMATION
  Report Type: 
  Country: None (occurrence: None)
  Receive Date: 20080507
  Receipt Date: 20070406
  Transmission Date: 20081010
  Serious: Yes (Other)
  Sender: FDA-Public Use
  Company Number: US-PFIZER INC-2007007672

PATIENT
  Sex: Male
  Weight: 89.4 kg

DRUGS (5)
  1. CHANTIX [Suspect]
     Indication: SMOKING CESSATION THERAPY
  2. ALCOHOL [Suspect]
  3. CADUET [Concomitant]
  4. ATACAND [Concomitant]
  5. NEXIUM [Concomitant]

REACTIONS (2)
  - BLOOD ALCOHOL INCREASED [None]
  - CONVULSION [None]
